FAERS Safety Report 6385731-9 (Version None)
Quarter: 2009Q4

REPORT INFORMATION
  Report Type: 
  Country: None (occurrence: None)
  Receive Date: 20091002
  Receipt Date: 20081006
  Transmission Date: 20100525
  Serious: No
  Sender: FDA-Public Use
  Company Number: US-ASTRAZENECA-2008UW21705

PATIENT
  Age: 70 Year
  Sex: Female

DRUGS (3)
  1. ARIMIDEX [Suspect]
     Route: 048
     Dates: start: 20050101
  2. DIOVAN HCT [Concomitant]
     Dosage: 160/12.5MG DAILY
  3. CALCIUM [Concomitant]
     Dosage: 2 TABS DAILY

REACTIONS (2)
  - LIMB INJURY [None]
  - NAIL DISORDER [None]
